FAERS Safety Report 10724246 (Version 3)
Quarter: 2015Q1

REPORT INFORMATION
  Report Type: Spontaneous
  Country: IE (occurrence: IE)
  Receive Date: 20150120
  Receipt Date: 20150202
  Transmission Date: 20150721
  Serious: Yes (Hospitalization)
  Sender: FDA-Public Use
  Company Number: IE-PFIZER INC-2015023121

PATIENT
  Age: 57 Year
  Sex: Male

DRUGS (1)
  1. INLYTA [Suspect]
     Active Substance: AXITINIB
     Indication: METASTATIC RENAL CELL CARCINOMA
     Dosage: 5 MG, UNK, FOR 1 MONTH

REACTIONS (4)
  - Lower respiratory tract infection [Unknown]
  - Dysphonia [Not Recovered/Not Resolved]
  - Hypertension [Unknown]
  - Stomatitis [Not Recovered/Not Resolved]
